FAERS Safety Report 9895072 (Version 1)
Quarter: 2014Q1

REPORT INFORMATION
  Report Type: Spontaneous
  Country: US (occurrence: US)
  Receive Date: 20140213
  Receipt Date: 20140213
  Transmission Date: 20141002
  Serious: No
  Sender: FDA-Public Use
  Company Number: US-BRISTOL-MYERS SQUIBB COMPANY-17478868

PATIENT
  Age: 66 Year
  Sex: Male
  Weight: 115.64 kg

DRUGS (2)
  1. ABATACEPT SUBQ INJECTION 125MG/ML [Suspect]
     Indication: RHEUMATOID ARTHRITIS
     Dosage: LAST INJECTION:  07MAR2013
     Route: 058
  2. CEFDINIR [Concomitant]

REACTIONS (1)
  - Sinusitis [Not Recovered/Not Resolved]
